FAERS Safety Report 9481518 (Version 2)
Quarter: 2013Q3

REPORT INFORMATION
  Report Type: Spontaneous
  Country: US (occurrence: US)
  Receive Date: 20130828
  Receipt Date: 20130828
  Transmission Date: 20140515
  Serious: Yes (Hospitalization)
  Sender: FDA-Public Use
  Company Number: US-AMGEN-KDL168752

PATIENT
  Age: 58 Year
  Sex: Female

DRUGS (1)
  1. ENBREL [Suspect]
     Indication: PSORIASIS
     Dosage: 50 MG, 2 TIMES/WK
     Route: 058
     Dates: start: 20051101

REACTIONS (5)
  - Clostridium difficile infection [Recovered/Resolved]
  - Tension [Unknown]
  - Tearfulness [Unknown]
  - Diarrhoea [Unknown]
  - Abdominal pain lower [Unknown]
